FAERS Safety Report 17125484 (Version 1)
Quarter: 2019Q4

REPORT INFORMATION
  Report Type: Spontaneous
  Country: GB (occurrence: GB)
  Receive Date: 20191207
  Receipt Date: 20191207
  Transmission Date: 20200122
  Serious: Yes (Life-Threatening, Hospitalization, Other)
  Sender: FDA-Public Use
  Company Number: GB-AMGEN-GBRSP2019204812

PATIENT
  Sex: Female

DRUGS (2)
  1. ERENUMAB [Suspect]
     Active Substance: ERENUMAB
     Indication: MIGRAINE
     Dosage: UNK
     Route: 065
  2. BOTOX [Suspect]
     Active Substance: ONABOTULINUMTOXINA
     Indication: MIGRAINE
     Dosage: UNK
     Route: 065

REACTIONS (11)
  - Impaired gastric emptying [Unknown]
  - Muscle disorder [Unknown]
  - Weight decreased [Unknown]
  - Mitochondrial DNA mutation [Unknown]
  - Neuromyopathy [Unknown]
  - Ileus paralytic [Unknown]
  - Hemiplegic migraine [Unknown]
  - Vestibular migraine [Unknown]
  - Near death experience [Unknown]
  - Starvation [Unknown]
  - Dehydration [Unknown]
